FAERS Safety Report 7225946-0 (Version None)
Quarter: 2011Q1

REPORT INFORMATION
  Report Type: 
  Country: None (occurrence: None)
  Receive Date: 20110113
  Receipt Date: 20101228
  Transmission Date: 20110831
  Serious: No
  Sender: FDA-Public Use
  Company Number: US-B.I. PHARMACEUTICALS,INC./RIDGEFIELD-2011-BP-00320BP

PATIENT
  Sex: Female

DRUGS (12)
  1. COREG [Concomitant]
     Indication: HYPERTENSION
     Dosage: 12.5 MG
     Route: 048
  2. STOOL SOFTENERS [Concomitant]
     Indication: FAECES HARD
     Route: 048
  3. LEVOTHYROXINE [Concomitant]
     Indication: HYPOTHYROIDISM
     Route: 048
  4. LAXATIVE [Concomitant]
     Indication: CONSTIPATION
     Route: 048
  5. VYTORIN [Concomitant]
     Indication: BLOOD CHOLESTEROL INCREASED
     Dosage: 10/40
     Route: 048
  6. ARICEPT [Concomitant]
     Indication: MEMORY IMPAIRMENT
     Dosage: 5 MG
     Route: 048
  7. PRADAXA [Suspect]
     Indication: ATRIAL FIBRILLATION
     Route: 048
     Dates: start: 20101218
  8. ALENDRONATE [Concomitant]
     Indication: OSTEOPOROSIS
     Route: 048
  9. PLAVIX [Concomitant]
     Indication: THROMBOSIS PROPHYLAXIS
     Dosage: 75 MG
     Route: 048
  10. NEURONTIN [Concomitant]
     Dosage: 300 MG
     Route: 048
  11. GLYBURIDE [Concomitant]
     Indication: DIABETES MELLITUS
     Dosage: 2.5 MG
     Route: 048
  12. MULTI-VITAMIN [Concomitant]
     Route: 048

REACTIONS (2)
  - EYE HAEMORRHAGE [None]
  - OCULAR HYPERAEMIA [None]
